FAERS Safety Report 14070490 (Version 3)
Quarter: 2018Q1

REPORT INFORMATION
  Report Type: Spontaneous
  Country: BR (occurrence: BR)
  Receive Date: 20171011
  Receipt Date: 20180104
  Transmission Date: 20180508
  Serious: Yes (Other)
  Sender: FDA-Public Use
  Company Number: BR-ALEXION PHARMACEUTICALS INC.-A201710837

PATIENT
  Age: 34 Year
  Sex: Female

DRUGS (4)
  1. SOLIRIS [Suspect]
     Active Substance: ECULIZUMAB
     Dosage: 900 MG, Q2W
     Route: 065
  2. SOLIRIS [Suspect]
     Active Substance: ECULIZUMAB
     Dosage: 900 MG, EVERY 14 DAYS
     Route: 042
     Dates: start: 20130117
  3. SOLIRIS [Suspect]
     Active Substance: ECULIZUMAB
     Dosage: UNK, UNK
     Route: 065
     Dates: start: 20121220
  4. SOLIRIS [Suspect]
     Active Substance: ECULIZUMAB
     Indication: PAROXYSMAL NOCTURNAL HAEMOGLOBINURIA
     Dosage: 600 MG, FOR 4 WEEKS
     Route: 042
     Dates: start: 20121220, end: 20130110

REACTIONS (8)
  - Haemolysis [Not Recovered/Not Resolved]
  - Jaundice [Not Recovered/Not Resolved]
  - Blood bilirubin increased [Unknown]
  - Splenomegaly [Unknown]
  - Abdominal pain [Unknown]
  - Blood lactate dehydrogenase increased [Unknown]
  - Inappropriate schedule of drug administration [Unknown]
  - Chromaturia [Recovering/Resolving]

NARRATIVE: CASE EVENT DATE: 20170922
